FAERS Safety Report 7884943-2 (Version None)
Quarter: 2011Q4

REPORT INFORMATION
  Report Type: 
  Country: None (occurrence: None)
  Receive Date: 20111102
  Receipt Date: 20111014
  Transmission Date: 20120403
  Serious: Yes (Hospitalization)
  Sender: FDA-Public Use
  Company Number: PHHY2011JP92735

PATIENT
  Sex: Male

DRUGS (1)
  1. NATEGLINIDE [Suspect]
     Indication: DIABETES MELLITUS
     Dosage: 270 MG, QD
     Route: 048

REACTIONS (2)
  - ANXIETY [None]
  - PROSTATIC SPECIFIC ANTIGEN INCREASED [None]
